FAERS Safety Report 22786933 (Version 3)
Quarter: 2023Q4

REPORT INFORMATION
  Report Type: Spontaneous
  Country: US (occurrence: US)
  Receive Date: 20230804
  Receipt Date: 20231009
  Transmission Date: 20240110
  Serious: No
  Sender: FDA-Public Use
  Company Number: US-BRISTOL-MYERS SQUIBB COMPANY-2023-109492

PATIENT
  Age: 69 Year
  Sex: Female
  Weight: 83.46 kg

DRUGS (2)
  1. REVLIMID [Suspect]
     Active Substance: LENALIDOMIDE
     Indication: Plasma cell myeloma
     Dosage: DAILY
     Route: 048
  2. REVLIMID [Suspect]
     Active Substance: LENALIDOMIDE

REACTIONS (5)
  - Constipation [Not Recovered/Not Resolved]
  - Dry skin [Not Recovered/Not Resolved]
  - Dyspepsia [Not Recovered/Not Resolved]
  - Skin exfoliation [Unknown]
  - Skin discolouration [Unknown]
